FAERS Safety Report 19134652 (Version 1)
Quarter: 2021Q2

REPORT INFORMATION
  Report Type: Spontaneous
  Country: US (occurrence: US)
  Receive Date: 20210414
  Receipt Date: 20210414
  Transmission Date: 20210717
  Serious: Yes (Hospitalization, Other)
  Sender: FDA-Public Use
  Company Number: US-OTSUKA-2021_011977

PATIENT
  Age: 39 Year
  Sex: Male

DRUGS (8)
  1. REXULTI [Suspect]
     Active Substance: BREXPIPRAZOLE
     Indication: MAJOR DEPRESSION
  2. ABILIFY [Suspect]
     Active Substance: ARIPIPRAZOLE
     Indication: GENERALISED ANXIETY DISORDER
  3. ZOLOFT [Suspect]
     Active Substance: SERTRALINE HYDROCHLORIDE
     Indication: PRODUCT USED FOR UNKNOWN INDICATION
     Dosage: 100 MG ( USING SINCE 1.5 YEARS)
     Route: 065
  4. ABILIFY [Suspect]
     Active Substance: ARIPIPRAZOLE
     Indication: PANIC DISORDER
  5. REXULTI [Suspect]
     Active Substance: BREXPIPRAZOLE
     Indication: GENERALISED ANXIETY DISORDER
     Dosage: 0.5 MG, BID
     Route: 065
     Dates: start: 202102
  6. ABILIFY [Suspect]
     Active Substance: ARIPIPRAZOLE
     Indication: MAJOR DEPRESSION
     Dosage: 2 MG, QD
     Route: 065
  7. COCAINE [Suspect]
     Active Substance: COCAINE
     Indication: PRODUCT USED FOR UNKNOWN INDICATION
     Dosage: UNK
     Route: 065
     Dates: start: 202103
  8. REXULTI [Suspect]
     Active Substance: BREXPIPRAZOLE
     Indication: PANIC DISORDER

REACTIONS (9)
  - Impulsive behaviour [Unknown]
  - Swelling [Recovering/Resolving]
  - Product use in unapproved indication [Unknown]
  - Drug dependence [Unknown]
  - Cardiac disorder [Unknown]
  - Contusion [Recovering/Resolving]
  - Myalgia [Recovering/Resolving]
  - Confusional state [Recovering/Resolving]
  - Rash [Recovering/Resolving]

NARRATIVE: CASE EVENT DATE: 202103
